FAERS Safety Report 13950292 (Version 1)
Quarter: 2017Q3

REPORT INFORMATION
  Report Type: Spontaneous
  Country: US (occurrence: US)
  Receive Date: 20170908
  Receipt Date: 20170908
  Transmission Date: 20171128
  Serious: Yes (Hospitalization)
  Sender: FDA-Public Use
  Company Number: US-HQ SPECIALTY-US-2017INT000328

PATIENT
  Age: 73 Year
  Sex: Female

DRUGS (2)
  1. VALPROIC ACID. [Suspect]
     Active Substance: VALPROIC ACID
     Indication: SEIZURE
     Dosage: 800 MG, TID
     Route: 065
  2. LEVETIRACETAM IN SODIUM CHLORIDE INJECTION [Suspect]
     Active Substance: LEVETIRACETAM
     Indication: SEIZURE
     Dosage: 1500 MG, BID
     Route: 065

REACTIONS (2)
  - Acute generalised exanthematous pustulosis [Recovered/Resolved]
  - Leukocytosis [Recovered/Resolved]
